FAERS Safety Report 15932910 (Version 2)
Quarter: 2019Q3

REPORT INFORMATION
  Report Type: Spontaneous
  Country: US (occurrence: US)
  Receive Date: 20190207
  Receipt Date: 20190820
  Transmission Date: 20191004
  Serious: No
  Sender: FDA-Public Use
  Company Number: US-MYLANLABS-2019M1007676

PATIENT
  Sex: Female

DRUGS (1)
  1. PAROXETINE MYLAN [Suspect]
     Active Substance: PAROXETINE
     Indication: PANIC DISORDER
     Dosage: UNK
     Route: 065

REACTIONS (1)
  - Urticaria [Recovered/Resolved]
